FAERS Safety Report 13911688 (Version 1)
Quarter: 2017Q3

REPORT INFORMATION
  Report Type: Report from Study
  Country: US (occurrence: US)
  Receive Date: 20170828
  Receipt Date: 20170828
  Transmission Date: 20171127
  Serious: No
  Sender: FDA-Public Use
  Company Number: PHEH2017US027410

PATIENT
  Age: 72 Year
  Sex: Male

DRUGS (2)
  1. ILEVRO [Suspect]
     Active Substance: NEPAFENAC
     Indication: EYE PAIN
     Dosage: 2 GTT, BID
     Route: 047
     Dates: start: 20170815, end: 20170815
  2. DUREZOL [Suspect]
     Active Substance: DIFLUPREDNATE
     Indication: EYE PAIN
     Dosage: 2 GTT, BID
     Route: 047
     Dates: start: 20170815, end: 20170815

REACTIONS (2)
  - Eye pain [Recovered/Resolved]
  - Condition aggravated [Recovered/Resolved]

NARRATIVE: CASE EVENT DATE: 20170815
